FAERS Safety Report 9177142 (Version 1)
Quarter: 2013Q1

REPORT INFORMATION
  Report Type: Spontaneous
  Country: GB (occurrence: None)
  Receive Date: 20130319
  Receipt Date: 20130319
  Transmission Date: 20140127
  Serious: Yes (Disabling, Congenital Anomaly)
  Sender: FDA-Public Use
  Company Number: FK201300830

PATIENT
  Age: 51 Year
  Sex: Female

DRUGS (4)
  1. LETROZOLE (MANUFACTURER UNKNOWN) (LETROZOLE) (LETROZOLE) [Suspect]
     Indication: PRODUCT USED FOR UNKNOWN INDICATION
     Route: 048
     Dates: start: 20121217
  2. HERCEPTIN (TRASTUZUMAB) (TRASTUZUMAB) [Suspect]
     Indication: PRODUCT USED FOR UNKNOWN INDICATION
     Dosage: 1 IN 3 WK, INTRAVENOUS (NOT OTHERWISE SPECIFIED)
     Route: 042
     Dates: start: 20121217
  3. CHLORPHENIRAMINE(CHLORPHENAMINE) [Concomitant]
  4. PREDNISONE(PREDNISONE) [Concomitant]

REACTIONS (3)
  - Congenital anomaly [None]
  - Condition aggravated [None]
  - Arthralgia [None]
